FAERS Safety Report 4483874-8 (Version None)
Quarter: 2004Q4

REPORT INFORMATION
  Report Type: 
  Country: None (occurrence: None)
  Receive Date: 20041025
  Receipt Date: 20041019
  Transmission Date: 20050328
  Serious: Yes (Other)
  Sender: FDA-Public Use
  Company Number: US-JNJFOC-20041006439

PATIENT
  Age: 12 Year
  Sex: Female
  Weight: 40.82 kg

DRUGS (5)
  1. HALDOL [Suspect]
     Route: 049
     Dates: start: 20040307, end: 20040326
  2. TENEX [Concomitant]
  3. ZOLOFT [Concomitant]
  4. SEROQUEL [Concomitant]
  5. STRATTERA [Concomitant]

REACTIONS (4)
  - CONFUSIONAL STATE [None]
  - EXTRAPYRAMIDAL DISORDER [None]
  - EYE ROLLING [None]
  - SUICIDAL IDEATION [None]
